FAERS Safety Report 5598281-4 (Version None)
Quarter: 2008Q1

REPORT INFORMATION
  Report Type: 
  Country: None (occurrence: None)
  Receive Date: 20080117
  Receipt Date: 20080117
  Transmission Date: 20080703
  Serious: Yes (Other)
  Sender: FDA-Public Use
  Company Number: None

PATIENT
  Age: 43 Year
  Sex: Female
  Weight: 74.8435 kg

DRUGS (1)
  1. CHANTIX [Suspect]
     Indication: SMOKING CESSATION THERAPY
     Dosage: BID PO
     Route: 048
     Dates: start: 20070720, end: 20070801

REACTIONS (5)
  - APATHY [None]
  - FLAT AFFECT [None]
  - INDIFFERENCE [None]
  - MENTAL DISORDER [None]
  - SUICIDAL IDEATION [None]
